FAERS Safety Report 10886550 (Version 2)
Quarter: 2021Q2

REPORT INFORMATION
  Report Type: Spontaneous
  Country: KR (occurrence: KR)
  Receive Date: 20150304
  Receipt Date: 20210528
  Transmission Date: 20210716
  Serious: Yes (Other)
  Sender: FDA-Public Use
  Company Number: KR-GILEAD-2015-0139627

PATIENT
  Age: 64 Year
  Sex: Male

DRUGS (1)
  1. HEPSERA [Suspect]
     Active Substance: ADEFOVIR DIPIVOXIL
     Indication: PRODUCT USED FOR UNKNOWN INDICATION
     Dosage: 10 MG
     Route: 048

REACTIONS (2)
  - Hypophosphataemia [Unknown]
  - Osteomalacia [Unknown]
